FAERS Safety Report 7903648-2 (Version None)
Quarter: 2011Q4

REPORT INFORMATION
  Report Type: 
  Country: None (occurrence: None)
  Receive Date: 20111109
  Receipt Date: 20111104
  Transmission Date: 20120403
  Serious: Yes (Life-Threatening)
  Sender: FDA-Public Use
  Company Number: US-JNJFOC-20110905639

PATIENT
  Sex: Female

DRUGS (2)
  1. NORTRIPTYLINE HCL [Concomitant]
     Indication: NEUROPATHY PERIPHERAL
     Route: 065
     Dates: start: 20110728
  2. NUCYNTA [Suspect]
     Indication: PAIN
     Route: 048
     Dates: start: 20110728, end: 20110801

REACTIONS (4)
  - TREMOR [None]
  - RASH [None]
  - NERVOUSNESS [None]
  - THROAT TIGHTNESS [None]
